FAERS Safety Report 8515032-1 (Version None)
Quarter: 2012Q3

REPORT INFORMATION
  Report Type: 
  Country: None (occurrence: None)
  Receive Date: 20120717
  Receipt Date: 20120709
  Transmission Date: 20120928
  Serious: Yes (Hospitalization)
  Sender: FDA-Public Use
  Company Number: DE-JNJFOC-20120704551

PATIENT
  Age: 86 Year
  Sex: Female
  Weight: 49 kg

DRUGS (6)
  1. REMICADE [Suspect]
     Dosage: 05-DEC- (CONFLICTINGLY REPORTED AS 2012)
     Route: 042
  2. REMICADE [Suspect]
     Indication: CROHN'S DISEASE
     Dosage: 05-DEC- (CONFLICTINGLY REPORTED AS 2012)
     Route: 042
     Dates: start: 20120312
  3. REMICADE [Suspect]
     Dosage: 05-DEC- (CONFLICTINGLY REPORTED AS 2012)
     Route: 042
     Dates: start: 20120521
  4. REMICADE [Suspect]
     Dosage: 05-DEC- (CONFLICTINGLY REPORTED AS 2012)
     Route: 042
     Dates: start: 20120109
  5. REMICADE [Suspect]
     Dosage: 05-DEC- (CONFLICTINGLY REPORTED AS 2012)
     Route: 042
     Dates: start: 20120419
  6. REMICADE [Suspect]
     Dosage: 05-DEC- (CONFLICTINGLY REPORTED AS 2012)
     Route: 042
     Dates: start: 20120206

REACTIONS (1)
  - ABDOMINAL HERNIA [None]
